FAERS Safety Report 5893449-1 (Version None)
Quarter: 2008Q3

REPORT INFORMATION
  Report Type: 
  Country: None (occurrence: None)
  Receive Date: 20080922
  Receipt Date: 20080922
  Transmission Date: 20090109
  Serious: Yes (Death)
  Sender: FDA-Public Use
  Company Number: None

PATIENT
  Age: 59 Year
  Sex: Male
  Weight: 83.9154 kg

DRUGS (3)
  1. DEPO-MEDROL [Suspect]
  2. ADRENELINE- NOT SURE OF NAME- [Suspect]
  3. PENECILLIN [Concomitant]

REACTIONS (3)
  - BLOOD PRESSURE IMMEASURABLE [None]
  - FALL [None]
  - MALAISE [None]
